FAERS Safety Report 7642812-7 (Version None)
Quarter: 2011Q3

REPORT INFORMATION
  Report Type: 
  Country: None (occurrence: None)
  Receive Date: 20110728
  Receipt Date: 20110722
  Transmission Date: 20111222
  Serious: Yes (Hospitalization, Disabling, Other)
  Sender: FDA-Public Use
  Company Number: US-ABBOTT-11P-163-0841291-00

PATIENT
  Age: 43 Year
  Sex: Female
  Weight: 81.72 kg

DRUGS (13)
  1. COMBINATION PILL OF LISINOPRIL AND SOME FLUID PILL [Suspect]
     Indication: BLOOD PRESSURE ABNORMAL
     Dosage: 10/12.5 MG UNKNOW FREQUENCY
  2. MOTRIN [Suspect]
     Indication: FALL
     Dosage: 3 TO 4 TIMES PER DAY
  3. LYRICA [Suspect]
     Indication: FIBROMYALGIA
  4. XANAX [Suspect]
     Indication: PAIN
  5. VICODIN [Suspect]
     Indication: FALL
     Dosage: UNKNOWN
  6. VICODIN [Suspect]
     Indication: PAIN
  7. XANAX [Suspect]
     Indication: ANXIOLYTIC THERAPY
  8. MOTRIN [Suspect]
     Indication: PAIN
  9. ASPIRIN [Suspect]
     Indication: PRODUCT USED FOR UNKNOWN INDICATION
     Dosage: UNKNOWN
  10. CELEXA [Suspect]
     Indication: DEPRESSION
     Dosage: UNKNOWN
  11. XANAX [Suspect]
     Indication: SLEEP DISORDER
  12. SOMA [Suspect]
     Indication: PAIN
     Dosage: UNKNOWN
  13. SOMA [Suspect]
     Indication: FALL

REACTIONS (9)
  - TRANSIENT ISCHAEMIC ATTACK [None]
  - BLINDNESS UNILATERAL [None]
  - HYPOAESTHESIA [None]
  - FEELING ABNORMAL [None]
  - HEADACHE [None]
  - H1N1 INFLUENZA [None]
  - FALL [None]
  - PAIN [None]
  - ABDOMINAL DISCOMFORT [None]
